FAERS Safety Report 6544245-3 (Version None)
Quarter: 2010Q1

REPORT INFORMATION
  Report Type: 
  Country: None (occurrence: None)
  Receive Date: 20100119
  Receipt Date: 20100119
  Transmission Date: 20100710
  Serious: Yes (Hospitalization)
  Sender: FDA-Public Use
  Company Number: None

PATIENT
  Sex: Male
  Weight: 98.4306 kg

DRUGS (4)
  1. METHOTREXATE- 30 MG/M2 [Suspect]
     Indication: BLADDER CANCER
     Dosage: SCHEDULED FOR EVERY 2 WEEKS
  2. VINBLASTINE- 3 MG/M2 [Suspect]
  3. DOXORUBICIN- 30MG/M2 [Suspect]
  4. CISPLATIN [Suspect]

REACTIONS (1)
  - BLOOD CREATININE INCREASED [None]
